FAERS Safety Report 9786181 (Version 4)
Quarter: 2019Q4

REPORT INFORMATION
  Report Type: Spontaneous
  Country: BR (occurrence: BR)
  Receive Date: 20131227
  Receipt Date: 20191220
  Transmission Date: 20200122
  Serious: Yes (Life-Threatening)
  Sender: FDA-Public Use
  Company Number: BR-ELI_LILLY_AND_COMPANY-BR201312008536

PATIENT
  Age: 66 Year
  Sex: Female

DRUGS (4)
  1. CALCIUM [Concomitant]
     Active Substance: CALCIUM
     Indication: PRODUCT USED FOR UNKNOWN INDICATION
     Dosage: UNK, UNKNOWN
     Route: 065
  2. FORTEO [Suspect]
     Active Substance: TERIPARATIDE
     Indication: OSTEOPOROSIS
     Dosage: 1 DF, BID
     Route: 065
  3. VITAMINA D [Concomitant]
     Indication: PRODUCT USED FOR UNKNOWN INDICATION
     Dosage: UNK, UNKNOWN
     Route: 065
  4. FORTEO [Suspect]
     Active Substance: TERIPARATIDE
     Indication: PARATHYROIDECTOMY
     Dosage: 1 DF, QD
     Route: 065
     Dates: start: 2007

REACTIONS (11)
  - Intentional overdose [Unknown]
  - Functional gastrointestinal disorder [Unknown]
  - Overdose [Unknown]
  - Tetany [Unknown]
  - Diabetes mellitus [Unknown]
  - Diarrhoea [Unknown]
  - Blood pressure increased [Unknown]
  - Dehydration [Unknown]
  - Incorrect product administration duration [Unknown]
  - Product storage error [Unknown]
  - Muscle spasms [Unknown]
